FAERS Safety Report 16918879 (Version 1)
Quarter: 2019Q4

REPORT INFORMATION
  Report Type: Spontaneous
  Country: US (occurrence: US)
  Receive Date: 20191014
  Receipt Date: 20191014
  Transmission Date: 20200122
  Serious: Yes (Disabling)
  Sender: FDA-Public Use
  Company Number: None

PATIENT
  Age: 70 Year
  Sex: Female
  Weight: 81 kg

DRUGS (5)
  1. ARMOUR THYROID [Suspect]
     Active Substance: THYROID, PORCINE
     Indication: HYPOTHYROIDISM
     Dosage: ?          QUANTITY:1 TABLET(S);?
     Route: 048
  2. ZINC. [Concomitant]
     Active Substance: ZINC
  3. MULTI VITAMIN [Concomitant]
     Active Substance: VITAMINS
  4. VITAMIN D3 [Concomitant]
     Active Substance: CHOLECALCIFEROL
  5. MAGNESIUM [Concomitant]
     Active Substance: MAGNESIUM

REACTIONS (8)
  - Night sweats [None]
  - Fatigue [None]
  - Dry skin [None]
  - Anxiety [None]
  - Product substitution issue [None]
  - Palpitations [None]
  - Weight increased [None]
  - Alopecia [None]

NARRATIVE: CASE EVENT DATE: 20191012
